FAERS Safety Report 8272852 (Version 12)
Quarter: 2016Q2

REPORT INFORMATION
  Report Type: Report from Study
  Country: AR (occurrence: AR)
  Receive Date: 20111202
  Receipt Date: 20160511
  Transmission Date: 20160815
  Serious: Yes (Hospitalization, Other)
  Sender: FDA-Public Use
  Company Number: PHHY2011AR103588

PATIENT
  Age: 53 Year
  Sex: Female

DRUGS (5)
  1. TASIGNA [Suspect]
     Active Substance: NILOTINIB
     Indication: CHRONIC MYELOID LEUKAEMIA
     Dosage: 200 MG, QD
     Route: 048
     Dates: start: 201108
  2. TASIGNA [Suspect]
     Active Substance: NILOTINIB
     Dosage: 800 MG, QD
     Route: 048
     Dates: start: 201110
  3. TASIGNA [Suspect]
     Active Substance: NILOTINIB
     Dosage: 400 MG, QD
     Route: 048
     Dates: start: 201201
  4. TASIGNA [Suspect]
     Active Substance: NILOTINIB
     Dosage: 800 MG, QD
     Route: 048
  5. TASIGNA [Suspect]
     Active Substance: NILOTINIB
     Dosage: 400 MG, QOD
     Route: 048

REACTIONS (28)
  - Rheumatic disorder [Not Recovered/Not Resolved]
  - Arthralgia [Recovering/Resolving]
  - Fatigue [Not Recovered/Not Resolved]
  - Liver disorder [Unknown]
  - Blood cholesterol increased [Unknown]
  - Systemic lupus erythematosus [Not Recovered/Not Resolved]
  - Scleroderma [Unknown]
  - Rheumatoid arthritis [Unknown]
  - Peripheral swelling [Recovering/Resolving]
  - Pyrexia [Recovering/Resolving]
  - Back pain [Unknown]
  - Tachycardia [Unknown]
  - Bronchospasm [Recovering/Resolving]
  - Erythema [Recovering/Resolving]
  - Cough [Recovering/Resolving]
  - Nausea [Unknown]
  - Pulmonary thrombosis [Recovering/Resolving]
  - Skin discolouration [Recovering/Resolving]
  - Arthritis [Recovering/Resolving]
  - Platelet count decreased [Not Recovered/Not Resolved]
  - Agitation [Recovering/Resolving]
  - Pulmonary embolism [Unknown]
  - Gastritis [Recovering/Resolving]
  - Hypothyroidism [Not Recovered/Not Resolved]
  - Lymphadenopathy [Recovering/Resolving]
  - Epistaxis [Recovering/Resolving]
  - Tremor [Unknown]
  - Chest pain [Unknown]

NARRATIVE: CASE EVENT DATE: 20111124
